FAERS Safety Report 4988134-4 (Version None)
Quarter: 2006Q2

REPORT INFORMATION
  Report Type: 
  Country: None (occurrence: None)
  Receive Date: 20060501
  Receipt Date: 20051128
  Transmission Date: 20061013
  Serious: Yes (Hospitalization, Other)
  Sender: FDA-Public Use
  Company Number: US-MERCK-0511USA04438

PATIENT
  Age: 70 Year
  Sex: Male
  Weight: 86 kg

DRUGS (17)
  1. AMITRIPTYLINE HYDROCHLORIDE [Concomitant]
     Route: 065
  2. PAXIL [Concomitant]
     Route: 065
  3. BUSPAR [Concomitant]
     Route: 065
  4. VIOXX [Suspect]
     Indication: MONARTHRITIS
     Route: 048
     Dates: start: 20031117, end: 20041116
  5. VIOXX [Suspect]
     Indication: OSTEOARTHRITIS
     Route: 048
     Dates: start: 20031117, end: 20041116
  6. DIOVAN [Concomitant]
     Indication: HYPERTENSION
     Route: 065
     Dates: start: 19970101
  7. INDERAL [Concomitant]
     Indication: HYPERTENSION
     Route: 065
     Dates: start: 19800101
  8. NORVASC [Concomitant]
     Indication: HYPERTENSION
     Route: 065
     Dates: start: 19920101
  9. LASIX [Concomitant]
     Indication: HYPERTENSION
     Route: 065
     Dates: start: 19920101
  10. ASPIRIN [Concomitant]
     Route: 065
  11. POTASSIUM (UNSPECIFIED) [Concomitant]
     Route: 065
  12. ATENOLOL [Concomitant]
     Route: 065
  13. GLUCOSAMINE [Concomitant]
     Route: 065
  14. CHONDROITIN [Concomitant]
     Route: 065
  15. ROBINUL [Concomitant]
     Route: 065
  16. SULINDAC [Concomitant]
     Route: 065
  17. SPIRONOLACTONE [Concomitant]
     Indication: HYPERTENSION
     Route: 065

REACTIONS (5)
  - ANXIETY [None]
  - CEREBROVASCULAR ACCIDENT [None]
  - DYSPEPSIA [None]
  - ESSENTIAL HYPERTENSION [None]
  - MYOCARDIAL INFARCTION [None]
